FAERS Safety Report 6599780-9 (Version None)
Quarter: 2010Q1

REPORT INFORMATION
  Report Type: 
  Country: None (occurrence: None)
  Receive Date: 20100224
  Receipt Date: 20100215
  Transmission Date: 20100710
  Serious: Yes (Hospitalization, Other)
  Sender: FDA-Public Use
  Company Number: PHEH2006US03540

PATIENT
  Sex: Female
  Weight: 112.93 kg

DRUGS (11)
  1. AREDIA [Suspect]
     Indication: METASTASES TO BONE
     Dosage: 90 MG, QMO
     Route: 042
     Dates: start: 20001009, end: 20020218
  2. ZOMETA [Suspect]
     Indication: METASTASES TO BONE
     Dosage: 4 MG, QMO
     Route: 042
     Dates: start: 20020318, end: 20030306
  3. ZOMETA [Suspect]
     Dosage: 4 MG
     Dates: start: 20050101
  4. ZOMETA [Suspect]
     Dosage: UNK
  5. DIPHENHYDRAMINE [Concomitant]
     Dosage: 25 MG, QMO
  6. RADIATION THERAPY [Concomitant]
     Indication: METASTASES TO BONE
     Dosage: UNK
     Dates: start: 20081001
  7. VOLTAREN                           /00372303/ [Concomitant]
  8. NAPRELAN ^ELAN^ [Concomitant]
  9. CORTISONE [Concomitant]
  10. LOVENOX [Concomitant]
  11. TYLENOL W/ CODEINE NO. 3 [Concomitant]

REACTIONS (37)
  - ABDOMINAL HERNIA [None]
  - ACTINOMYCOSIS [None]
  - ARTERIOSCLEROSIS [None]
  - ARTHRALGIA [None]
  - ARTIFICIAL CROWN PROCEDURE [None]
  - BACK PAIN [None]
  - BALANCE DISORDER [None]
  - BONE LESION [None]
  - BONE OPERATION [None]
  - BONE PAIN [None]
  - BREAST CANCER METASTATIC [None]
  - CARDIOMEGALY [None]
  - DEBRIDEMENT [None]
  - DENTAL CARIES [None]
  - DISEASE PROGRESSION [None]
  - EXCESSIVE GRANULATION TISSUE [None]
  - FALL [None]
  - FISTULA [None]
  - GASTRIC BYPASS [None]
  - HEPATIC STEATOSIS [None]
  - HIP FRACTURE [None]
  - HIP SURGERY [None]
  - LYMPHADENECTOMY [None]
  - LYMPHADENOPATHY [None]
  - MASTECTOMY [None]
  - METASTASES TO BONE [None]
  - OSTEITIS [None]
  - OSTEOARTHRITIS [None]
  - OSTEONECROSIS [None]
  - POSTMENOPAUSAL HAEMORRHAGE [None]
  - RADIOTHERAPY [None]
  - SCOLIOSIS [None]
  - TENDONITIS [None]
  - TOOTH DISORDER [None]
  - TOOTH EXTRACTION [None]
  - TOOTH INFECTION [None]
  - TOOTHACHE [None]
